FAERS Safety Report 9741349 (Version 1)
Quarter: 2013Q4

REPORT INFORMATION
  Report Type: Spontaneous
  Country: US (occurrence: US)
  Receive Date: 20131209
  Receipt Date: 20131209
  Transmission Date: 20140711
  Serious: No
  Sender: FDA-Public Use
  Company Number: US-TEVA-448297USA

PATIENT
  Age: 2 Year
  Sex: Male

DRUGS (1)
  1. QVAR [Suspect]
     Indication: PROPHYLAXIS
     Route: 055

REACTIONS (1)
  - Off label use [Unknown]
